FAERS Safety Report 8570067 (Version 16)
Quarter: 2015Q2

REPORT INFORMATION
  Report Type: Report from Study
  Country: GB (occurrence: GB)
  Receive Date: 20120518
  Receipt Date: 20150515
  Transmission Date: 20150821
  Serious: Yes (Hospitalization, Other)
  Sender: FDA-Public Use
  Company Number: GB-ROCHE-1068595

PATIENT
  Age: 84 Year
  Sex: Female
  Weight: 38.7 kg

DRUGS (11)
  1. PREDSOL [Concomitant]
     Active Substance: PREDNISOLONE
     Dosage: MOUTH WASH, ONE/AMP
     Route: 065
     Dates: start: 20120329, end: 20120509
  2. VEMURAFENIB [Suspect]
     Active Substance: VEMURAFENIB
     Indication: METASTATIC MALIGNANT MELANOMA
     Dosage: LAST DOSE PRIOR TO SAE: 12/APR/2013, 13/APR/2012, 29/MAR/2012
     Route: 048
     Dates: start: 20120119
  3. ASPRIN [Concomitant]
     Active Substance: ASPIRIN
     Route: 065
     Dates: start: 20121001
  4. SOTALOL. [Concomitant]
     Active Substance: SOTALOL
     Route: 065
     Dates: start: 20121002
  5. ATENOLOL. [Concomitant]
     Active Substance: ATENOLOL
     Route: 065
     Dates: start: 2001, end: 20120414
  6. DIFFLAM ORAL RINSE [Concomitant]
     Dosage: ONE/AMP MOUTH WASH
     Route: 065
     Dates: start: 20120329, end: 20120509
  7. VEMURAFENIB [Suspect]
     Active Substance: VEMURAFENIB
     Dosage: LAST DOSE PRIOR TO SAE ON ON 18/DEC/2013
     Route: 048
     Dates: start: 20120607
  8. NEUROFEN COLD + FLU [Concomitant]
     Route: 065
     Dates: start: 20120329, end: 20120509
  9. LANSOPRAZOLE. [Concomitant]
     Active Substance: LANSOPRAZOLE
     Route: 065
     Dates: start: 20120607
  10. SIMVASTATIN. [Concomitant]
     Active Substance: SIMVASTATIN
     Route: 065
     Dates: start: 2001
  11. DEXAMETHASONE. [Concomitant]
     Active Substance: DEXAMETHASONE
     Route: 065
     Dates: start: 20121122

REACTIONS (4)
  - Squamous cell carcinoma of skin [Not Recovered/Not Resolved]
  - Supraventricular tachycardia [Recovered/Resolved]
  - Keratoacanthoma [Recovered/Resolved]
  - Squamous cell carcinoma of skin [Recovered/Resolved]

NARRATIVE: CASE EVENT DATE: 20120329
